FAERS Safety Report 17727913 (Version 2)
Quarter: 2020Q2

REPORT INFORMATION
  Report Type: Spontaneous
  Country: US (occurrence: US)
  Receive Date: 20200430
  Receipt Date: 20200504
  Transmission Date: 20200714
  Serious: No
  Sender: FDA-Public Use
  Company Number: US-PFIZER INC-2020174064

PATIENT
  Age: 22 Year
  Sex: Female
  Weight: 72.57 kg

DRUGS (1)
  1. EFFEXOR XR [Suspect]
     Active Substance: VENLAFAXINE HYDROCHLORIDE
     Indication: DEPRESSION
     Dosage: 300 MG, 1X/DAY (1 CAPSULE EVERY NIGHT)
     Route: 048
     Dates: start: 2011

REACTIONS (4)
  - Pruritus [Unknown]
  - Mastocytosis [Unknown]
  - Overdose [Unknown]
  - Histamine intolerance [Not Recovered/Not Resolved]

NARRATIVE: CASE EVENT DATE: 2011
